FAERS Safety Report 4484237-1 (Version None)
Quarter: 2004Q4

REPORT INFORMATION
  Report Type: 
  Country: None (occurrence: None)
  Receive Date: 20041025
  Receipt Date: 20031103
  Transmission Date: 20050328
  Serious: Yes (Death, Hospitalization)
  Sender: FDA-Public Use
  Company Number: B0313643A

PATIENT
  Age: 55 Year
  Sex: Female

DRUGS (8)
  1. ZIDOVUDINE [Suspect]
     Indication: HIV INFECTION
     Dosage: 300MG TWICE PER DAY
     Route: 048
     Dates: start: 20020731, end: 20030901
  2. LAMIVUDINE [Suspect]
     Indication: HIV INFECTION
     Dosage: 150MG TWICE PER DAY
     Route: 048
     Dates: start: 20020731
  3. STAVUDINE [Suspect]
     Indication: HIV INFECTION
     Dosage: 30MG TWICE PER DAY
     Route: 048
     Dates: start: 20030901
  4. NELFINAVIR [Suspect]
     Indication: HIV INFECTION
     Dosage: 1250MG PER DAY
     Route: 048
     Dates: start: 20030725
  5. RITONAVIR [Suspect]
     Indication: HIV INFECTION
     Dosage: 100MG PER DAY
     Route: 048
     Dates: start: 20020731, end: 20030725
  6. FORTOVASE [Suspect]
     Indication: HIV INFECTION
     Dosage: 1600MG PER DAY
     Route: 048
     Dates: start: 20020731, end: 20030130
  7. INVIRASE [Suspect]
     Indication: HIV INFECTION
     Dosage: 1000MG PER DAY
     Route: 048
     Dates: start: 20030130, end: 20030705
  8. COTRIMOXAZOLE [Concomitant]

REACTIONS (13)
  - ASTHENIA [None]
  - CARDIAC ARREST [None]
  - COAGULOPATHY [None]
  - DIARRHOEA [None]
  - DYSPNOEA [None]
  - EPISTAXIS [None]
  - FATIGUE [None]
  - HEPATIC FUNCTION ABNORMAL [None]
  - HEPATOMEGALY [None]
  - LUNG DISORDER [None]
  - PRODUCTIVE COUGH [None]
  - PYREXIA [None]
  - RESPIRATORY FAILURE [None]
